FAERS Safety Report 21002781 (Version 3)
Quarter: 2023Q4

REPORT INFORMATION
  Report Type: Report from Study
  Country: CH (occurrence: CH)
  Receive Date: 20220624
  Receipt Date: 20231124
  Transmission Date: 20240110
  Serious: Yes (Hospitalization)
  Sender: FDA-Public Use
  Company Number: CH-SUN PHARMACEUTICAL INDUSTRIES LTD-2022RR-341977

PATIENT
  Age: 73 Year
  Sex: Male

DRUGS (12)
  1. SONIDEGIB [Suspect]
     Active Substance: SONIDEGIB
     Indication: Basal cell carcinoma
     Dosage: UNK
     Route: 065
  2. ASPIRIN [Concomitant]
     Active Substance: ASPIRIN
     Indication: Pre-existing disease
     Dosage: UNK
     Route: 048
  3. ATORVASTATIN CALCIUM [Concomitant]
     Active Substance: ATORVASTATIN CALCIUM
     Indication: Pre-existing disease
     Dosage: UNK
     Route: 048
  4. ZOLPIDEM [Concomitant]
     Active Substance: ZOLPIDEM TARTRATE
     Indication: Prophylaxis
     Dosage: UNK
     Route: 048
  5. BENSERAZIDE HYDROCHLORIDE\LEVODOPA [Concomitant]
     Active Substance: BENSERAZIDE HYDROCHLORIDE\LEVODOPA
     Indication: Pre-existing disease
     Dosage: UNK
     Route: 048
  6. PANTOPRAZOLE SODIUM [Concomitant]
     Active Substance: PANTOPRAZOLE SODIUM
     Indication: Prophylaxis
     Dosage: UNK
     Route: 065
  7. THROMBOREDUCTIN [Concomitant]
     Indication: Prophylaxis
     Dosage: UNK
     Route: 065
  8. Blephadin Augensalbe [Concomitant]
     Indication: Pre-existing disease
     Dosage: UNK
     Route: 031
  9. ALLOPURINOL [Concomitant]
     Active Substance: ALLOPURINOL
     Indication: Pre-existing disease
     Dosage: UNK
     Route: 048
  10. Oculac [Concomitant]
     Indication: Pre-existing disease
     Dosage: UNK
     Route: 031
  11. COSOPT [Concomitant]
     Active Substance: DORZOLAMIDE HYDROCHLORIDE\TIMOLOL MALEATE
     Indication: Pre-existing disease
     Dosage: UNK
     Route: 065
  12. Vitamin A Augensalbe [Concomitant]
     Indication: Pre-existing disease
     Dosage: UNK
     Route: 031

REACTIONS (2)
  - Haemorrhage [Unknown]
  - Rash pustular [Recovered/Resolved]
